FAERS Safety Report 10068743 (Version 1)
Quarter: 2014Q2

REPORT INFORMATION
  Report Type: Spontaneous
  Country: US (occurrence: US)
  Receive Date: 20140409
  Receipt Date: 20140409
  Transmission Date: 20141212
  Serious: Yes (Other)
  Sender: FDA-Public Use
  Company Number: US-BAYER-2014-052353

PATIENT
  Sex: Female
  Weight: 73.47 kg

DRUGS (4)
  1. BETASERON [Suspect]
  2. AVONEX [Suspect]
  3. COPAXONE [Suspect]
  4. XANAX [Suspect]

REACTIONS (5)
  - Injection site necrosis [None]
  - Influenza like illness [None]
  - Skin reaction [None]
  - Drug ineffective [None]
  - Panic attack [Not Recovered/Not Resolved]
